FAERS Safety Report 25635517 (Version 1)
Quarter: 2025Q3

REPORT INFORMATION
  Report Type: Spontaneous
  Country: TR (occurrence: TR)
  Receive Date: 20250802
  Receipt Date: 20250802
  Transmission Date: 20251020
  Serious: Yes (Death, Life-Threatening, Hospitalization)
  Sender: ACCORD
  Company Number: TR-MLMSERVICE-20250718-PI578427-00218-3

PATIENT
  Age: 58 Year
  Sex: Male

DRUGS (9)
  1. METHOTREXATE [Suspect]
     Active Substance: METHOTREXATE
     Indication: Central nervous system lymphoma
     Route: 037
     Dates: start: 20240930, end: 20241003
  2. CYTARABINE [Suspect]
     Active Substance: CYTARABINE
     Indication: Central nervous system lymphoma
     Dates: start: 20240930, end: 20241003
  3. RITUXIMAB [Suspect]
     Active Substance: RITUXIMAB
     Indication: Central nervous system lymphoma
     Dosage: FIRST CYCLE
     Dates: start: 20240902, end: 202409
  4. FOLIC ACID [Concomitant]
     Active Substance: FOLIC ACID
     Dates: start: 20241001
  5. CEFOPERAZONE\SULBACTAM [Concomitant]
     Active Substance: CEFOPERAZONE\SULBACTAM
     Dates: start: 20241010
  6. MICAFUNGIN SODIUM [Concomitant]
     Active Substance: MICAFUNGIN SODIUM
     Dates: start: 20241010
  7. PREDNISOLONE [Concomitant]
     Active Substance: PREDNISOLONE
     Indication: Rash erythematous
     Dates: start: 20241013
  8. METHOTREXATE [Suspect]
     Active Substance: METHOTREXATE
     Indication: Central nervous system lymphoma
     Dosage: 3000 MG/M2?FIRST CYCLE
     Dates: start: 20240902, end: 202409
  9. CYTARABINE [Suspect]
     Active Substance: CYTARABINE
     Indication: Central nervous system lymphoma
     Dosage: FIRST CYCLE
     Dates: start: 20240902, end: 202409

REACTIONS (2)
  - Multiple organ dysfunction syndrome [Fatal]
  - Neutropenia [Fatal]

NARRATIVE: CASE EVENT DATE: 20241001
